FAERS Safety Report 24468327 (Version 2)
Quarter: 2024Q4

REPORT INFORMATION
  Report Type: Spontaneous
  Country: US (occurrence: US)
  Receive Date: 20241018
  Receipt Date: 20241226
  Transmission Date: 20250115
  Serious: Yes (Other)
  Sender: BLUEPRINT MEDICINES
  Company Number: US-Blueprint Medicines Corporation-5069

PATIENT
  Age: 56 Year
  Sex: Female

DRUGS (1)
  1. AYVAKIT [Suspect]
     Active Substance: AVAPRITINIB
     Indication: Mastocytic leukaemia
     Route: 065
     Dates: start: 20210629

REACTIONS (4)
  - Knee operation [Unknown]
  - Fatigue [Unknown]
  - Myalgia [Unknown]
  - Muscle strain [Unknown]

NARRATIVE: CASE EVENT DATE: 20240923
